FAERS Safety Report 23731022 (Version 4)
Quarter: 2024Q2

REPORT INFORMATION
  Report Type: Spontaneous
  Country: JP (occurrence: JP)
  Receive Date: 20240411
  Receipt Date: 20240603
  Transmission Date: 20240716
  Serious: No
  Sender: FDA-Public Use
  Company Number: JP-LEO Pharma-369149

PATIENT
  Age: 68 Year
  Sex: Male

DRUGS (1)
  1. ADBRY [Suspect]
     Active Substance: TRALOKINUMAB-LDRM
     Indication: Product used for unknown indication
     Dosage: S.C. INJECTION SYRINGE
     Route: 058

REACTIONS (1)
  - Dermatitis atopic [Unknown]
